FAERS Safety Report 13124357 (Version 1)
Quarter: 2017Q1

REPORT INFORMATION
  Report Type: Spontaneous
  Country: US (occurrence: US)
  Receive Date: 20170118
  Receipt Date: 20170118
  Transmission Date: 20170428
  Serious: Yes (Life-Threatening, Hospitalization, Other)
  Sender: FDA-Public Use
  Company Number: US-ACCORD-047425

PATIENT
  Age: 48 Year
  Sex: Male

DRUGS (2)
  1. ESZOPICLONE. [Interacting]
     Active Substance: ESZOPICLONE
     Indication: DEPRESSION
     Dosage: AT BEDTIME
  2. SERTRALINE [Suspect]
     Active Substance: SERTRALINE HYDROCHLORIDE
     Indication: DEPRESSION
     Dosage: AT BEDTIME

REACTIONS (3)
  - Drug interaction [Unknown]
  - Suicide attempt [Unknown]
  - Parasomnia [Unknown]
